FAERS Safety Report 9970290 (Version 3)
Quarter: 2014Q4

REPORT INFORMATION
  Report Type: Spontaneous
  Country: US (occurrence: None)
  Receive Date: 20140304
  Receipt Date: 20141223
  Transmission Date: 20150529
  Serious: Yes (Hospitalization, Other)
  Sender: FDA-Public Use
  Company Number: 2014-US-002254

PATIENT
  Age: 62 Year
  Sex: Female

DRUGS (3)
  1. NUVIGIL (AMODAFINIL) [Concomitant]
  2. XYREM [Suspect]
     Active Substance: SODIUM OXYBATE
     Indication: NARCOLEPSY
     Route: 048
  3. DEXEDRINE SPANSULE (DEXAMFETAMINE SULFATE) [Concomitant]

REACTIONS (6)
  - Nerve compression [None]
  - Abdominal adhesions [None]
  - Intestinal operation [None]
  - Intestinal perforation [None]
  - Intestinal obstruction [None]
  - Hyperhidrosis [None]

NARRATIVE: CASE EVENT DATE: 201401
